FAERS Safety Report 24955338 (Version 3)
Quarter: 2025Q3

REPORT INFORMATION
  Report Type: Report from Study
  Country: US (occurrence: US)
  Receive Date: 20250211
  Receipt Date: 20250715
  Transmission Date: 20251020
  Serious: Yes (Other)
  Sender: ABBVIE
  Company Number: US-ABBVIE-6125433

PATIENT
  Age: 80 Year
  Sex: Female

DRUGS (27)
  1. VENCLEXTA [Suspect]
     Active Substance: VENETOCLAX
     Indication: Acute myeloid leukaemia
     Dosage: FORM STRENGTH: 100MG?TAKE 4 TABLET(S) BY MOUTH (400MG) EVERY DAY FOR 14 DAYS THEN 14 DAYS OFF
     Route: 048
  2. VENCLEXTA [Suspect]
     Active Substance: VENETOCLAX
     Indication: Acute myeloid leukaemia
     Dosage: TAKE 2 TABLETS BY MOUTH DAILY FOR 30 DAYS. TAKE WITH FOOD AND A LARGE GLASS OF WATER.?DISPENSE: 6...
     Route: 048
  3. VENCLEXTA [Suspect]
     Active Substance: VENETOCLAX
     Indication: Acute myeloid leukaemia
     Dosage: TAKE 2 TABLET(S) BY MOUTH EVERY DAY WITH FOOD AND A LARGE GLASS OF WATER FOR 14 DAYS
     Route: 048
  4. TYLENOL [Concomitant]
     Active Substance: ACETAMINOPHEN
     Indication: Pain
     Dosage: TAKE 2 TABLETS BY MOUTH AS NEEDED ?DISPENSE: 30 TABLET
     Route: 048
  5. ZOVIRAX [Concomitant]
     Active Substance: ACYCLOVIR
     Indication: Product used for unknown indication
     Dosage: TAKE 1 TABLET ? DISPENSE: 30 TABLET
     Route: 048
  6. TEMOVATE [Concomitant]
     Active Substance: CLOBETASOL PROPIONATE
     Indication: Skin lesion
     Route: 061
  7. ZOCOR [Concomitant]
     Active Substance: SIMVASTATIN
     Indication: Product used for unknown indication
     Dosage: TAKE 1 TABLET BY MOUTH DAILY.?DISPENSE: 90 TABLET
     Route: 048
  8. SPIRIVA RESPIMAT [Concomitant]
     Active Substance: TIOTROPIUM BROMIDE
     Indication: Product used for unknown indication
     Dosage: INHALE 1 PUFF INTO THE LUNGS DAILY?DISPENSE: 1 EACH?2.5 MCG/ACTUATION?MIST
  9. ALBUTEROL [Concomitant]
     Active Substance: ALBUTEROL
     Indication: Wheezing
     Dosage: INHALE 2 PUFFS INTO THE LUNGS EVERY 4 HOURS AS NEEDED ? USE WITH SPACER?DISPENSE: 3 EACH?90 MCG/A...
  10. NORVASC [Concomitant]
     Active Substance: AMLODIPINE BESYLATE
     Indication: Product used for unknown indication
     Dosage: TAKE 1 TABLET BY MOUTH DAILY.?DISPENSE: 90 TABLET
     Route: 048
  11. AUGMENTIN [Concomitant]
     Active Substance: AMOXICILLIN\CLAVULANATE POTASSIUM
     Indication: Product used for unknown indication
     Dosage: TAKE 1 TABLET BY MOUTH 2 TIMES DAILY.?DISPENSE: 10 TABLET?500-125 MG
     Route: 048
  12. ELIQUIS [Concomitant]
     Active Substance: APIXABAN
     Indication: Product used for unknown indication
     Dosage: TAKE 1 TABLET BY MOUTH 2 TIMES DAILY.?DISPENSE: 60 TABLET
     Route: 048
  13. SYMBICORT [Concomitant]
     Active Substance: BUDESONIDE\FORMOTEROL FUMARATE DIHYDRATE
     Indication: Product used for unknown indication
     Dosage: INHALE 1 PUFF INTO THE LUNGS 2 TIMES DAILY.?DISPENSE: 1 EACH
     Route: 055
  14. TUMS [Concomitant]
     Active Substance: CALCIUM CARBONATE
     Indication: Product used for unknown indication
     Dosage: FORM STRENGTH 500 MG?TAKE 2 TABLETS BY MOUTH DAILY.?DISPENSE: 180 TABLET
     Route: 048
  15. VITAMIN D3 [Concomitant]
     Active Substance: CHOLECALCIFEROL
     Indication: Product used for unknown indication
     Dosage: TAKE 1 CAPSULE BY MOUTH DAILY.?DISPENSE: 30 CAPSULE?50 MCG (2,000 UNIT)
     Route: 048
  16. VITAMIN B12 [Concomitant]
     Active Substance: CYANOCOBALAMIN
     Indication: Product used for unknown indication
     Dosage: TAKE 1 TABLET BY MOUTH DAILY.?DISPENSE: 90 TABLET?1,000 MCG
     Route: 048
  17. PEPCID [Concomitant]
     Active Substance: FAMOTIDINE
     Indication: Product used for unknown indication
     Dosage: TAKE 1 TABLET BY MOUTH TWICE A DAY?DISPENSE: 60 TABLET
     Route: 048
  18. DIFLUCAN [Concomitant]
     Active Substance: FLUCONAZOLE
     Indication: Product used for unknown indication
     Dosage: TAKE 2 TABLETS BY MOUTH DAILY.?DISPENSE: 60 TABLET
     Route: 048
  19. FLONASE [Concomitant]
     Active Substance: FLUTICASONE PROPIONATE
     Indication: Rhinitis
     Dosage: 1 SPRAY BY EACH NARE ROUTE 2 TIMES DAILY AS NEEDED.?DISPENSE: 16 G?50 MCG/ACTUATION?(SPRAY, SUSPE...
  20. NEURONTIN [Concomitant]
     Active Substance: GABAPENTIN
     Indication: Product used for unknown indication
     Dosage: TAKE 1 CAPSULE BY MOUTH NIGHTLY.?DISPENSE: 90 CAPSULE
     Route: 048
  21. HYDRODIURIL [Concomitant]
     Active Substance: HYDROCHLOROTHIAZIDE
     Indication: Product used for unknown indication
     Dosage: TAKE 1 TABLET BY MOUTH DAILY. REMINDER TO CHECK BLOOD WORK 1 WEEK AFTER ?INHALER STARTING 50 MG A...
     Route: 048
  22. LEVAQUIN [Concomitant]
     Active Substance: LEVOFLOXACIN
     Indication: Product used for unknown indication
     Route: 048
  23. CLARITIN [Concomitant]
     Active Substance: LORATADINE
     Indication: Product used for unknown indication
     Dosage: TAKE 1 TABLET BY MOUTH DAILY.?DISPENSE: 90 TABLET
     Route: 048
  24. COZAAR [Concomitant]
     Active Substance: LOSARTAN POTASSIUM
     Indication: Product used for unknown indication
     Dosage: TAKE 1 TABLET BY MOUTH DAILY.?DISPENSE: 90 TABLET
     Route: 048
  25. MAGNESIUM OXIDE [Concomitant]
     Active Substance: MAGNESIUM OXIDE
     Indication: Product used for unknown indication
     Dosage: TAKE 1 TABLET BY MOUTH 2 TIMES DAILY.?DISPENSE: 180 TABLET?241.3 MG MAGNESIUM
     Route: 048
  26. TOPROL XL [Concomitant]
     Active Substance: METOPROLOL SUCCINATE
     Indication: Product used for unknown indication
     Dosage: TAKE 1 TABLET BY MOUTH DAILY.?DISPENSE: 90 TABLET?SUSTAINED RELEASE TABLET 24 HOURS
     Route: 048
  27. KLOR CON M [Concomitant]
     Active Substance: POTASSIUM CHLORIDE
     Indication: Product used for unknown indication
     Dosage: TAKE 1 TABLET BY MOUTH DAILY.?DISPENSE: 90 TABLET?SUSTAINED RELEASE PARTICLE OR CRYSTAL
     Route: 048

REACTIONS (3)
  - Leukaemia [Not Recovered/Not Resolved]
  - Dementia [Unknown]
  - Confusional state [Not Recovered/Not Resolved]
